FAERS Safety Report 4977488-0 (Version None)
Quarter: 2006Q2

REPORT INFORMATION
  Report Type: 
  Country: None (occurrence: None)
  Receive Date: 20060420
  Receipt Date: 20060418
  Transmission Date: 20061013
  Serious: Yes (Other)
  Sender: FDA-Public Use
  Company Number: DE-RB-3130-2006

PATIENT
  Age: 34 Year
  Sex: Male
  Weight: 101 kg

DRUGS (3)
  1. BUPRENORPHINE HCL [Suspect]
     Indication: DRUG DEPENDENCE
     Dosage: 6 -10 MG QD
     Route: 048
     Dates: start: 20020101
  2. BUPRENORPHINE HCL [Suspect]
     Route: 048
  3. BUPRENORPHINE HCL [Suspect]
     Route: 048
     Dates: start: 20060109

REACTIONS (1)
  - LIBIDO DECREASED [None]
